FAERS Safety Report 8479356-9 (Version None)
Quarter: 2012Q2

REPORT INFORMATION
  Report Type: 
  Country: None (occurrence: None)
  Receive Date: 20120629
  Receipt Date: 20120627
  Transmission Date: 20120825
  Serious: Yes (Hospitalization)
  Sender: FDA-Public Use
  Company Number: CH-BAYER-2012-063378

PATIENT
  Age: 68 Year
  Sex: Male

DRUGS (8)
  1. ASPIRIN [Suspect]
     Dosage: 100 MG, UNK
     Route: 048
  2. GLUCOPHAGE [Concomitant]
     Dosage: 800 MG, BID
     Route: 048
     Dates: end: 20120428
  3. MARCUMAR [Suspect]
     Dosage: 3 MG, PRN
     Route: 048
     Dates: end: 20120428
  4. PERINDOPRIL ERBUMINE [Concomitant]
     Dosage: 5 MG, QD
     Route: 048
  5. ATORVASTATIN CALCIUM [Concomitant]
     Dosage: 80 MG, QD
     Route: 048
  6. PANTOPRAZOLE [Concomitant]
     Route: 048
  7. ESCITALOPRAM [Concomitant]
     Dosage: 10 MG, QD
     Route: 048
  8. LAMICTAL [Concomitant]
     Dosage: 75 MG, BID
     Route: 048

REACTIONS (3)
  - HEMIPARESIS [None]
  - HAEMORRHAGE INTRACRANIAL [None]
  - DYSARTHRIA [None]
